FAERS Safety Report 21970852 (Version 15)
Quarter: 2023Q4

REPORT INFORMATION
  Report Type: Spontaneous
  Country: CA (occurrence: CA)
  Receive Date: 20230209
  Receipt Date: 20231024
  Transmission Date: 20240109
  Serious: Yes (Other)
  Sender: FDA-Public Use
  Company Number: CA-CELLTRION INC.-2023CA002752

PATIENT

DRUGS (12)
  1. INFLECTRA [Suspect]
     Active Substance: INFLIXIMAB-DYYB
     Indication: Crohn^s disease
     Dosage: 5 MG/KG, W0, W2, W6 AND EVERY 8 WEEKS
     Route: 042
     Dates: start: 20230118
  2. INFLECTRA [Suspect]
     Active Substance: INFLIXIMAB-DYYB
     Dosage: 5 MG/KG, W0, W2, W6 AND EVERY 8 WEEKS
     Route: 042
     Dates: start: 20230208
  3. INFLECTRA [Suspect]
     Active Substance: INFLIXIMAB-DYYB
     Dosage: 5 MG/KG, W0,W2,W6 AND EVERY 8 WEEKS
     Route: 042
     Dates: start: 20230314
  4. INFLECTRA [Suspect]
     Active Substance: INFLIXIMAB-DYYB
     Dosage: 5 MG/KG, W0,W2,W6 AND EVERY 8 WEEKS
     Route: 042
     Dates: start: 20230314
  5. INFLECTRA [Suspect]
     Active Substance: INFLIXIMAB-DYYB
     Dosage: 5 MG/KG, W0,W2,W6 AND EVERY 8 WEEKS
     Route: 042
     Dates: start: 20230314
  6. INFLECTRA [Suspect]
     Active Substance: INFLIXIMAB-DYYB
     Dosage: 5 MG/KG, W0,W2,W6 AND EVERY 8 WEEKS
     Route: 042
     Dates: start: 20230314
  7. INFLECTRA [Suspect]
     Active Substance: INFLIXIMAB-DYYB
     Dosage: 370 MG, (5 MG/KG) W0,W2,W6 AND EVERY 8 WEEKS
     Route: 042
     Dates: start: 20230503
  8. INFLECTRA [Suspect]
     Active Substance: INFLIXIMAB-DYYB
     Dosage: 7.5 MG/KG (7500 MICROGRAM/KILOGRAM), EVERY 6 WEEK
     Route: 042
     Dates: start: 20230614
  9. INFLECTRA [Suspect]
     Active Substance: INFLIXIMAB-DYYB
     Dosage: 7.5 MG/KG (7500 MICROGRAM/KILOGRAM), EVERY 6 WEEK
     Route: 042
     Dates: start: 20230727
  10. INFLECTRA [Suspect]
     Active Substance: INFLIXIMAB-DYYB
     Dosage: 740 MG (10 MG/KG) AFTER 6 WEEKS AND 1 DAY, ONGOING FREQUENCY: EVERY 6 WEEKS
     Route: 042
     Dates: start: 20230908
  11. INFLECTRA [Suspect]
     Active Substance: INFLIXIMAB-DYYB
     Dosage: 740 MG (10 MG/KG) AFTER 6 WEEKS AND 1 DAY, ONGOING FREQUENCY: EVERY 6 WEEKS
     Route: 042
     Dates: start: 20230908
  12. IRON [Concomitant]
     Active Substance: IRON
     Dosage: 1 DF, UNKNOWN
     Route: 065

REACTIONS (25)
  - Wisdom teeth removal [Unknown]
  - Systemic lupus erythematosus [Not Recovered/Not Resolved]
  - Condition aggravated [Not Recovered/Not Resolved]
  - Drug specific antibody present [Unknown]
  - Abnormal dreams [Unknown]
  - Odynophagia [Not Recovered/Not Resolved]
  - Arthritis [Not Recovered/Not Resolved]
  - Oesophageal pain [Recovering/Resolving]
  - Gastrointestinal disorder [Recovering/Resolving]
  - Aphthous ulcer [Unknown]
  - Gait disturbance [Unknown]
  - Sleep disorder due to general medical condition, insomnia type [Unknown]
  - Fatigue [Not Recovered/Not Resolved]
  - Dizziness [Not Recovered/Not Resolved]
  - Insomnia [Not Recovered/Not Resolved]
  - Pyrexia [Unknown]
  - Nasopharyngitis [Recovering/Resolving]
  - Back pain [Not Recovered/Not Resolved]
  - Arthralgia [Not Recovered/Not Resolved]
  - Pain [Not Recovered/Not Resolved]
  - Rash pruritic [Not Recovered/Not Resolved]
  - Nausea [Not Recovered/Not Resolved]
  - Off label use [Unknown]
  - Off label use [Unknown]
  - Intentional product use issue [Unknown]

NARRATIVE: CASE EVENT DATE: 20230101
